FAERS Safety Report 13937852 (Version 3)
Quarter: 2017Q3

REPORT INFORMATION
  Report Type: Spontaneous
  Country: DO (occurrence: DO)
  Receive Date: 20170905
  Receipt Date: 20170926
  Transmission Date: 20171127
  Serious: Yes (Life-Threatening, Hospitalization)
  Sender: FDA-Public Use
  Company Number: DO-SA-2017SA159093

PATIENT
  Age: 28 Year
  Sex: Female

DRUGS (1)
  1. LEMTRADA [Suspect]
     Active Substance: ALEMTUZUMAB
     Indication: MULTIPLE SCLEROSIS
     Route: 041
     Dates: start: 20170724, end: 20170728

REACTIONS (20)
  - Constipation [Recovered/Resolved]
  - Respiratory tract infection [Unknown]
  - Haemodynamic instability [Unknown]
  - Pyrexia [Not Recovered/Not Resolved]
  - Abdominal distension [Recovered/Resolved]
  - Fatigue [Recovered/Resolved]
  - Septic shock [Unknown]
  - Diarrhoea [Recovered/Resolved]
  - Vomiting [Recovered/Resolved]
  - Abdominal pain [Recovered/Resolved]
  - Neurogenic bladder [Unknown]
  - Cough [Recovered/Resolved]
  - Pyrexia [Recovered/Resolved]
  - Intestinal obstruction [Unknown]
  - Megacolon [Recovered/Resolved]
  - Vomiting [Recovered/Resolved]
  - Gastric infection [Unknown]
  - Rhinitis [Recovered/Resolved]
  - Primary progressive multiple sclerosis [Unknown]
  - Paraplegia [Unknown]

NARRATIVE: CASE EVENT DATE: 2017
